FAERS Safety Report 8250586-4 (Version None)
Quarter: 2012Q1

REPORT INFORMATION
  Report Type: 
  Country: None (occurrence: None)
  Receive Date: 20120319
  Receipt Date: 20090910
  Transmission Date: 20120608
  Serious: Yes (Other)
  Sender: FDA-Public Use
  Company Number: PHEH2009US10471

PATIENT
  Age: 56 Year
  Sex: Female

DRUGS (3)
  1. TEKTURNA [Suspect]
     Indication: HYPERTENSION
     Dosage: 150 MG, QD, ORAL ; 300 MG, QD, ORAL
     Route: 048
     Dates: start: 20090504, end: 20090812
  2. TEKTURNA [Suspect]
     Indication: HYPERTENSION
     Dosage: 150 MG, QD, ORAL ; 300 MG, QD, ORAL
     Route: 048
     Dates: start: 20090812, end: 20090824
  3. EXFORGE [Concomitant]

REACTIONS (2)
  - THROAT TIGHTNESS [None]
  - PHARYNGEAL OEDEMA [None]
